FAERS Safety Report 6036119-1 (Version None)
Quarter: 2009Q1

REPORT INFORMATION
  Report Type: 
  Country: None (occurrence: None)
  Receive Date: 20090113
  Receipt Date: 20090105
  Transmission Date: 20090719
  Serious: Yes (Hospitalization)
  Sender: FDA-Public Use
  Company Number: US-GENENTECH-274901

PATIENT
  Sex: Female
  Weight: 62.1 kg

DRUGS (7)
  1. BEVACIZUMAB [Suspect]
     Indication: BREAST CANCER METASTATIC
     Dosage: 621 MG, UNK
     Route: 042
     Dates: start: 20080718
  2. ABRAXANE [Suspect]
     Indication: BREAST CANCER METASTATIC
     Dosage: 248 MG, UNK
     Route: 042
     Dates: start: 20080718
  3. ABRAXANE [Suspect]
     Dosage: 186 MG, UNK
     Route: 042
  4. GEMZAR [Suspect]
     Indication: BREAST CANCER METASTATIC
     Dosage: 2475 MG, UNK
     Route: 042
     Dates: start: 20080718
  5. GEMZAR [Suspect]
     Dosage: 1856 MG, UNK
     Route: 042
  6. FOSAMAX [Concomitant]
     Indication: DRUG USE FOR UNKNOWN INDICATION
     Dosage: 70 MG, UNK
     Route: 048
  7. SYNTHROID [Concomitant]
     Indication: DRUG USE FOR UNKNOWN INDICATION
     Dosage: 0.1 MG, UNK
     Route: 048

REACTIONS (1)
  - PYREXIA [None]
